FAERS Safety Report 24943201 (Version 1)
Quarter: 2025Q1

REPORT INFORMATION
  Report Type: Spontaneous
  Country: JP (occurrence: JP)
  Receive Date: 20250207
  Receipt Date: 20250207
  Transmission Date: 20250409
  Serious: Yes (Hospitalization, Other)
  Sender: ALEXION PHARMACEUTICALS
  Company Number: JP-ASTRAZENECA-250011926_063010_P_1

PATIENT
  Age: 92 Year
  Weight: 63 kg

DRUGS (12)
  1. DAPAGLIFLOZIN [Suspect]
     Active Substance: DAPAGLIFLOZIN
     Indication: Cardiac failure chronic
     Dosage: 10 MILLIGRAM, QD
  2. SPIRONOLACTONE [Concomitant]
     Active Substance: SPIRONOLACTONE
  3. ASPIRIN\VONOPRAZAN FUMARATE [Concomitant]
     Active Substance: ASPIRIN\VONOPRAZAN FUMARATE
  4. BISOPROLOL FUMARATE [Concomitant]
     Active Substance: BISOPROLOL FUMARATE
  5. ENTRESTO [Concomitant]
     Active Substance: SACUBITRIL\VALSARTAN
  6. ATORVASTATIN CALCIUM TRIHYDRATE [Concomitant]
     Active Substance: ATORVASTATIN CALCIUM TRIHYDRATE
  7. VILDAGLIPTIN [Concomitant]
     Active Substance: VILDAGLIPTIN
  8. URAPIDIL [Concomitant]
     Active Substance: URAPIDIL
  9. MAGNESIUM OXIDE [Concomitant]
     Active Substance: MAGNESIUM OXIDE
  10. PREDONINE [Concomitant]
     Active Substance: PREDNISOLONE
  11. FLUOROMETHOLONE [Concomitant]
     Active Substance: FLUOROMETHOLONE
  12. LEVOFLOXACIN HEMIHYDRATE [Concomitant]
     Active Substance: LEVOFLOXACIN

REACTIONS (2)
  - Septic shock [Recovered/Resolved]
  - Urinary tract infection [Recovered/Resolved]
